FAERS Safety Report 5500256-8 (Version None)
Quarter: 2007Q4

REPORT INFORMATION
  Report Type: 
  Country: None (occurrence: None)
  Receive Date: 20071029
  Receipt Date: 20071018
  Transmission Date: 20080405
  Serious: Yes (Life-Threatening, Hospitalization)
  Sender: FDA-Public Use
  Company Number: JP-ELI_LILLY_AND_COMPANY-JP200710000313

PATIENT
  Sex: Female

DRUGS (9)
  1. ZYPREXA [Suspect]
     Indication: BIPOLAR I DISORDER
     Dosage: 5 MG, DAILY (1/D)
     Route: 048
     Dates: start: 20070904
  2. ZYPREXA [Suspect]
     Dosage: 10 MG, DAILY (1/D)
     Route: 048
     Dates: start: 20070906
  3. ZYPREXA [Suspect]
     Dosage: 20 MG, DAILY (1/D)
     Route: 048
     Dates: start: 20070913
  4. LEVOTOMIN [Concomitant]
     Indication: BIPOLAR I DISORDER
     Dosage: 25 MG, DAILY (1/D)
     Route: 048
     Dates: start: 20070910
  5. DEPAKENE [Concomitant]
     Indication: BIPOLAR I DISORDER
     Dosage: 400 MG, DAILY (1/D)
     Route: 048
     Dates: start: 20070911
  6. LITHIUM CARBONATE [Concomitant]
     Indication: BIPOLAR I DISORDER
     Dosage: 600 MG, DAILY (1/D)
     Route: 048
     Dates: start: 20070904
  7. ROHYPNOL [Concomitant]
     Indication: INSOMNIA
     Dosage: 1 MG, DAILY (1/D)
     Route: 048
     Dates: start: 20070904
  8. VEGETAMIN B [Concomitant]
     Indication: INSOMNIA
     Dosage: UNK, DAILY (1/D)
     Route: 048
     Dates: start: 20070904
  9. PROMETHAZINE [Concomitant]
     Indication: BIPOLAR I DISORDER
     Dosage: 25 MG, DAILY (1/D)
     Dates: start: 20070904

REACTIONS (3)
  - DEEP VEIN THROMBOSIS [None]
  - ORAL INTAKE REDUCED [None]
  - PULMONARY EMBOLISM [None]
